FAERS Safety Report 6955327-6 (Version None)
Quarter: 2010Q3

REPORT INFORMATION
  Report Type: 
  Country: None (occurrence: None)
  Receive Date: 20100826
  Receipt Date: 20100818
  Transmission Date: 20110219
  Serious: Yes (Hospitalization)
  Sender: FDA-Public Use
  Company Number: 016950

PATIENT
  Sex: Female
  Weight: 45.6 kg

DRUGS (6)
  1. CIMZIA [Suspect]
     Indication: CROHN'S DISEASE
     Dosage: 400 MG 1X/MONTH SUBCUTANEOUS
     Route: 058
     Dates: start: 20100319, end: 20100715
  2. PREDNISOLONE [Concomitant]
  3. NEXIUM [Concomitant]
  4. LIPITOR [Concomitant]
  5. SERETIDE [Concomitant]
  6. ACCOLATE [Concomitant]

REACTIONS (5)
  - ARTHRITIS [None]
  - MUSCLE ABSCESS [None]
  - MUSCULOSKELETAL PAIN [None]
  - MYOSITIS [None]
  - OSTEOMYELITIS [None]
